FAERS Safety Report 16000531 (Version 1)
Quarter: 2019Q1

REPORT INFORMATION
  Report Type: Spontaneous
  Country: US (occurrence: US)
  Receive Date: 20190225
  Receipt Date: 20190225
  Transmission Date: 20190418
  Serious: No
  Sender: FDA-Public Use
  Company Number: US-ELI_LILLY_AND_COMPANY-US201902008205

PATIENT
  Age: 24 Year
  Sex: Male

DRUGS (1)
  1. PROZAC [Suspect]
     Active Substance: FLUOXETINE HYDROCHLORIDE
     Indication: OBSESSIVE-COMPULSIVE PERSONALITY DISORDER
     Dosage: 40 MG, DAILY
     Route: 048

REACTIONS (3)
  - Ejaculation delayed [Not Recovered/Not Resolved]
  - Proteinuria [Not Recovered/Not Resolved]
  - Drug ineffective [Not Recovered/Not Resolved]
